FAERS Safety Report 4380331-4 (Version None)
Quarter: 2004Q2

REPORT INFORMATION
  Report Type: 
  Country: None (occurrence: None)
  Receive Date: 20040617
  Receipt Date: 20040617
  Transmission Date: 20050107
  Serious: No
  Sender: FDA-Public Use
  Company Number: None

PATIENT
  Age: 85 Year
  Sex: Male

DRUGS (3)
  1. RYTHMOL [Suspect]
     Dosage: TABLET
  2. ATROVENT [Suspect]
  3. XOPENEX [Suspect]

REACTIONS (1)
  - MEDICATION ERROR [None]
